FAERS Safety Report 7283334-5 (Version None)
Quarter: 2011Q1

REPORT INFORMATION
  Report Type: 
  Country: None (occurrence: None)
  Receive Date: 20110204
  Receipt Date: 20110204
  Transmission Date: 20110831
  Serious: Yes (Other)
  Sender: FDA-Public Use
  Company Number: None

PATIENT
  Age: 64 Year
  Sex: Female
  Weight: 112.9003 kg

DRUGS (2)
  1. LOSARTAN POTASSIUM [Suspect]
     Indication: ESSENTIAL HYPERTENSION
     Dosage: 50 MG QD PO
     Route: 048
     Dates: start: 20110106
  2. LOSARTAN POTASSIUM [Suspect]
     Indication: ESSENTIAL HYPERTENSION
     Dosage: 50 MG QD PO
     Route: 048
     Dates: start: 20101201

REACTIONS (2)
  - BLOOD PRESSURE INADEQUATELY CONTROLLED [None]
  - PRODUCT SUBSTITUTION ISSUE [None]
